FAERS Safety Report 9399216 (Version 2)
Quarter: 2013Q3

REPORT INFORMATION
  Report Type: Spontaneous
  Country: US (occurrence: US)
  Receive Date: 20130715
  Receipt Date: 20130722
  Transmission Date: 20140515
  Serious: Yes (Other)
  Sender: FDA-Public Use
  Company Number: US-JNJFOC-20130702219

PATIENT
  Sex: Female

DRUGS (2)
  1. ZYRTEC-D [Suspect]
     Route: 048
  2. ZYRTEC-D [Suspect]
     Indication: PRURITUS GENERALISED
     Dosage: ON AND OFF FOR YEARS
     Route: 048

REACTIONS (1)
  - Bronchitis [Not Recovered/Not Resolved]
